FAERS Safety Report 15385277 (Version 3)
Quarter: 2018Q4

REPORT INFORMATION
  Report Type: Report from Study
  Country: DE (occurrence: DE)
  Receive Date: 20180914
  Receipt Date: 20181116
  Transmission Date: 20190204
  Serious: Yes (Hospitalization)
  Sender: FDA-Public Use
  Company Number: DE-TEVA-2018-DE-952990

PATIENT
  Age: 52 Year
  Sex: Female

DRUGS (2)
  1. BISOPROLOL 1.25 MG [Concomitant]
     Active Substance: BISOPROLOL
     Indication: HYPERTENSION
  2. COPAXONE [Suspect]
     Active Substance: GLATIRAMER ACETATE
     Indication: MULTIPLE SCLEROSIS
     Route: 058
     Dates: start: 20170831, end: 20180907

REACTIONS (10)
  - Abdominal pain [Recovered/Resolved]
  - Malaise [Recovered/Resolved]
  - Pyrexia [Recovered/Resolved]
  - Headache [Recovering/Resolving]
  - Chills [Recovered/Resolved]
  - Vomiting projectile [Recovered/Resolved]
  - Hangover [Recovering/Resolving]
  - Pain in extremity [Recovered/Resolved]
  - Asthenia [Recovering/Resolving]
  - Nausea [Recovered/Resolved]

NARRATIVE: CASE EVENT DATE: 20180906
